FAERS Safety Report 4686405-2 (Version None)
Quarter: 2005Q2

REPORT INFORMATION
  Report Type: 
  Country: None (occurrence: None)
  Receive Date: 20050609
  Receipt Date: 20050530
  Transmission Date: 20051028
  Serious: Yes (Hospitalization)
  Sender: FDA-Public Use
  Company Number: DE-ROCHE-406188

PATIENT
  Age: 61 Year
  Sex: Female
  Weight: 86 kg

DRUGS (1)
  1. XENICAL [Suspect]
     Indication: OVERWEIGHT
     Route: 048
     Dates: start: 20050402, end: 20050508

REACTIONS (5)
  - CHOLELITHIASIS [None]
  - DYSPEPSIA [None]
  - GASTROINTESTINAL DISORDER [None]
  - LIVER FUNCTION TEST ABNORMAL [None]
  - NAUSEA [None]
